FAERS Safety Report 7649903-5 (Version None)
Quarter: 2011Q3

REPORT INFORMATION
  Report Type: 
  Country: None (occurrence: None)
  Receive Date: 20110802
  Receipt Date: 20090824
  Transmission Date: 20111222
  Serious: Yes (Other)
  Sender: FDA-Public Use
  Company Number: US-BAYER-200841819NA

PATIENT
  Age: 47 Year
  Sex: Female

DRUGS (10)
  1. OMNISCAN [Suspect]
     Indication: NUCLEAR MAGNETIC RESONANCE IMAGING BRAIN
     Dosage: UNK, ONCE
     Dates: start: 20000707, end: 20000707
  2. PROHANCE [Suspect]
     Indication: NUCLEAR MAGNETIC RESONANCE IMAGING
  3. MULTIHANCE [Suspect]
     Indication: NUCLEAR MAGNETIC RESONANCE IMAGING
  4. MAGNEVIST [Suspect]
     Indication: NUCLEAR MAGNETIC RESONANCE IMAGING
  5. GADOLINIUM IN UNSPECIFIED DRUG [Suspect]
     Indication: NUCLEAR MAGNETIC RESONANCE IMAGING BRAIN
     Dosage: UNK UNK, ONCE
     Dates: start: 20000710, end: 20000710
  6. OMNISCAN [Suspect]
     Indication: NUCLEAR MAGNETIC RESONANCE IMAGING
     Dosage: UNK UNK, ONCE
     Dates: start: 20000705, end: 20000705
  7. OMNISCAN [Suspect]
  8. OMNISCAN [Suspect]
     Dosage: UNK, ONCE
     Dates: start: 20001103, end: 20001103
  9. OMNISCAN [Suspect]
     Indication: ANGIOGRAM
  10. OPTIMARK [Suspect]
     Indication: NUCLEAR MAGNETIC RESONANCE IMAGING

REACTIONS (13)
  - BONE PAIN [None]
  - SCAR [None]
  - MOBILITY DECREASED [None]
  - ANXIETY [None]
  - EMOTIONAL DISTRESS [None]
  - NEPHROGENIC SYSTEMIC FIBROSIS [None]
  - SKIN TIGHTNESS [None]
  - SKIN HYPERTROPHY [None]
  - GENERAL PHYSICAL HEALTH DETERIORATION [None]
  - JOINT STIFFNESS [None]
  - PAIN [None]
  - DEFORMITY [None]
  - ANHEDONIA [None]
